FAERS Safety Report 24455952 (Version 2)
Quarter: 2024Q4

REPORT INFORMATION
  Report Type: Report from Study
  Country: US (occurrence: US)
  Receive Date: 20241017
  Receipt Date: 20241018
  Transmission Date: 20250115
  Serious: No
  Sender: ROCHE
  Company Number: US-ROCHE-3499657

PATIENT
  Age: 65 Year
  Sex: Female

DRUGS (17)
  1. RITUXAN [Suspect]
     Active Substance: RITUXIMAB
     Indication: Granulomatosis with polyangiitis
     Route: 041
     Dates: start: 20211208
  2. RITUXAN [Suspect]
     Active Substance: RITUXIMAB
     Route: 041
     Dates: start: 20231228
  3. RITUXAN [Suspect]
     Active Substance: RITUXIMAB
     Route: 041
  4. PREDNISONE [Concomitant]
     Active Substance: PREDNISONE
     Route: 048
     Dates: start: 20230710
  5. AVACOPAN [Concomitant]
     Active Substance: AVACOPAN
     Route: 048
     Dates: start: 20230613
  6. AVACOPAN [Concomitant]
     Active Substance: AVACOPAN
     Route: 048
     Dates: start: 20220610
  7. AVACOPAN [Concomitant]
     Active Substance: AVACOPAN
     Route: 048
     Dates: start: 20220608
  8. KETOROLAC [Concomitant]
     Active Substance: KETOROLAC TROMETHAMINE
     Dosage: 1 DROP EACH DAY FOR 7 DAYS
     Route: 047
  9. FOLIC ACID [Concomitant]
     Active Substance: FOLIC ACID
     Route: 048
     Dates: start: 20230313
  10. CYMBALTA [Concomitant]
     Active Substance: DULOXETINE HYDROCHLORIDE
     Route: 048
     Dates: start: 20230116
  11. LYRICA [Concomitant]
     Active Substance: PREGABALIN
     Route: 048
     Dates: start: 20221208
  12. LYRICA [Concomitant]
     Active Substance: PREGABALIN
     Dosage: TAKE EVERY 12 HOUR
     Route: 048
  13. ALENDRONATE [Concomitant]
     Active Substance: ALENDRONATE SODIUM
     Route: 048
     Dates: start: 20220610
  14. IRON [Concomitant]
     Active Substance: IRON
     Route: 048
     Dates: start: 20210113
  15. ACETAMINOPHEN\HYDROCODONE [Concomitant]
     Active Substance: ACETAMINOPHEN\HYDROCODONE
     Route: 048
     Dates: start: 20210113
  16. LISINOPRIL [Concomitant]
     Active Substance: LISINOPRIL
     Route: 048
     Dates: start: 20210112
  17. KLONOPIN [Concomitant]
     Active Substance: CLONAZEPAM
     Dosage: NIGHTLY

REACTIONS (2)
  - Off label use [Unknown]
  - No adverse event [Unknown]
